FAERS Safety Report 17364597 (Version 1)
Quarter: 2020Q1

REPORT INFORMATION
  Report Type: Spontaneous
  Country: US (occurrence: US)
  Receive Date: 20200204
  Receipt Date: 20200204
  Transmission Date: 20200409
  Serious: Yes (Other)
  Sender: FDA-Public Use
  Company Number: US-STRIDES ARCOLAB LIMITED-2019SP010996

PATIENT
  Age: 54 Year
  Sex: Female

DRUGS (16)
  1. AMITRIPTYLINE [Suspect]
     Active Substance: AMITRIPTYLINE
     Indication: CLUSTER HEADACHE
     Dosage: UNK
     Route: 065
  2. SODIUM VALPROATE [Concomitant]
     Active Substance: VALPROATE SODIUM
     Indication: CLUSTER HEADACHE
     Dosage: UNK
     Route: 065
  3. CARBAMAZEPINE. [Concomitant]
     Active Substance: CARBAMAZEPINE
     Indication: STATUS MIGRAINOSUS
  4. GABAPENTIN. [Suspect]
     Active Substance: GABAPENTIN
     Indication: CLUSTER HEADACHE
     Dosage: UNK
     Route: 065
  5. GABAPENTIN. [Suspect]
     Active Substance: GABAPENTIN
     Indication: STATUS MIGRAINOSUS
  6. BUTALBITAL, ACETAMINOPHEN, AND CAFFEINE [Concomitant]
     Active Substance: ACETAMINOPHEN\BUTALBITAL\CAFFEINE
     Indication: STATUS MIGRAINOSUS
  7. PROPANOLOL                         /00030001/ [Concomitant]
     Active Substance: PROPRANOLOL HYDROCHLORIDE
     Indication: STATUS MIGRAINOSUS
  8. SODIUM VALPROATE [Concomitant]
     Active Substance: VALPROATE SODIUM
     Indication: STATUS MIGRAINOSUS
  9. SUMATRIPTAN. [Concomitant]
     Active Substance: SUMATRIPTAN
     Indication: CLUSTER HEADACHE
     Dosage: UNK
     Route: 048
  10. PROPANOLOL                         /00030001/ [Concomitant]
     Active Substance: PROPRANOLOL HYDROCHLORIDE
     Indication: CLUSTER HEADACHE
     Dosage: UNK
     Route: 065
  11. TOPIRAMATE. [Concomitant]
     Active Substance: TOPIRAMATE
     Indication: CLUSTER HEADACHE
     Dosage: UNK
     Route: 065
  12. SUMATRIPTAN. [Concomitant]
     Active Substance: SUMATRIPTAN
     Indication: STATUS MIGRAINOSUS
  13. BUTALBITAL, ACETAMINOPHEN, AND CAFFEINE [Concomitant]
     Active Substance: ACETAMINOPHEN\BUTALBITAL\CAFFEINE
     Indication: CLUSTER HEADACHE
     Dosage: UNK
     Route: 065
  14. AMITRIPTYLINE [Suspect]
     Active Substance: AMITRIPTYLINE
     Indication: STATUS MIGRAINOSUS
  15. CARBAMAZEPINE. [Concomitant]
     Active Substance: CARBAMAZEPINE
     Indication: CLUSTER HEADACHE
     Dosage: UNK
     Route: 065
  16. TOPIRAMATE. [Concomitant]
     Active Substance: TOPIRAMATE
     Indication: STATUS MIGRAINOSUS

REACTIONS (1)
  - Drug ineffective for unapproved indication [Unknown]
